FAERS Safety Report 4333251-5 (Version None)
Quarter: 2004Q2

REPORT INFORMATION
  Report Type: 
  Country: None (occurrence: None)
  Receive Date: 20040405
  Receipt Date: 20040405
  Transmission Date: 20050107
  Serious: Yes (Disabling)
  Sender: FDA-Public Use
  Company Number: None

PATIENT
  Sex: Male
  Weight: 79.3795 kg

DRUGS (2)
  1. PAXIL [Suspect]
     Indication: DEPRESSION
     Dosage: 40 MG DAILY ORAL
     Route: 048
  2. PAXIL [Suspect]
     Indication: SOCIAL PHOBIA
     Dosage: 40 MG DAILY ORAL
     Route: 048

REACTIONS (4)
  - AMNESIA [None]
  - DRUG DEPENDENCE [None]
  - DRUG WITHDRAWAL SYNDROME [None]
  - MIGRAINE [None]
